FAERS Safety Report 7955597-1 (Version None)
Quarter: 2011Q4

REPORT INFORMATION
  Report Type: 
  Country: None (occurrence: None)
  Receive Date: 20111202
  Receipt Date: 20111123
  Transmission Date: 20120403
  Serious: Yes (Other)
  Sender: FDA-Public Use
  Company Number: SE-ASTRAZENECA-2011SE65950

PATIENT
  Age: 300 Month
  Sex: Male
  Weight: 82 kg

DRUGS (2)
  1. SEROQUEL XR [Suspect]
     Indication: BIPOLAR II DISORDER
     Route: 048
     Dates: start: 20100601
  2. SEROQUEL XR [Suspect]
     Route: 048
     Dates: start: 20110101

REACTIONS (11)
  - HALLUCINATION [None]
  - IRRITABILITY [None]
  - HEADACHE [None]
  - NAUSEA [None]
  - CATATONIA [None]
  - VOMITING [None]
  - PSYCHOTIC DISORDER [None]
  - CRYING [None]
  - ANGER [None]
  - RESTLESSNESS [None]
  - DRUG DOSE OMISSION [None]
